FAERS Safety Report 10243204 (Version 1)
Quarter: 2014Q2

REPORT INFORMATION
  Report Type: Spontaneous
  Country: FR (occurrence: FR)
  Receive Date: 20140618
  Receipt Date: 20140618
  Transmission Date: 20141212
  Serious: Yes (Hospitalization, Other)
  Sender: FDA-Public Use
  Company Number: FR-ASTRAZENECA-2014SE44214

PATIENT
  Age: 68 Year
  Sex: Female

DRUGS (5)
  1. HYTACAND [Suspect]
     Dosage: 16 MG / 12.5 MG
     Route: 048
     Dates: start: 2011, end: 20140224
  2. OXYCONTIN [Suspect]
     Route: 048
     Dates: start: 20140218, end: 20140223
  3. CORTANCYL [Suspect]
     Route: 065
     Dates: start: 20140218, end: 20140223
  4. OXYNORM [Suspect]
     Route: 048
     Dates: start: 20140218, end: 20140223
  5. DEROXAT [Concomitant]
     Route: 048
     Dates: start: 2011

REACTIONS (5)
  - Fall [Recovered/Resolved]
  - Rhabdomyolysis [Unknown]
  - Hyponatraemia [Recovered/Resolved]
  - Diarrhoea [Unknown]
  - Constipation [Unknown]
